FAERS Safety Report 19068459 (Version 1)
Quarter: 2021Q1

REPORT INFORMATION
  Report Type: Spontaneous
  Country: US (occurrence: US)
  Receive Date: 20210326
  Receipt Date: 20210326
  Transmission Date: 20210420
  Serious: Yes (Hospitalization)
  Sender: FDA-Public Use
  Company Number: None

PATIENT
  Sex: Female

DRUGS (8)
  1. CAPECITABINE 500MG TAB ACCORD HEALTHCARE [Suspect]
     Active Substance: CAPECITABINE
     Indication: BREAST CANCER
     Dosage: ?          OTHER DOSE:3 TABS;OTHER FREQUENCY:QAM?QPM;OTHER ROUTE:PO?14 D ON? 7 D OFF?
     Dates: start: 20200926
  2. ZOFRAN [Concomitant]
     Active Substance: ONDANSETRON HYDROCHLORIDE
  3. XANAX [Concomitant]
     Active Substance: ALPRAZOLAM
  4. ZYRTEC ALLGY [Concomitant]
  5. OMEPRAZOLE. [Concomitant]
     Active Substance: OMEPRAZOLE
  6. FLONASE ALGY [Concomitant]
  7. CARAFATE [Concomitant]
     Active Substance: SUCRALFATE
  8. TYLENOL [Concomitant]
     Active Substance: ACETAMINOPHEN

REACTIONS (2)
  - Unevaluable event [None]
  - Condition aggravated [None]
